FAERS Safety Report 8395172-0 (Version None)
Quarter: 2012Q1

REPORT INFORMATION
  Report Type: 
  Country: None (occurrence: None)
  Receive Date: 20120323
  Receipt Date: 20110411
  Transmission Date: 20120608
  Serious: Yes (Other)
  Sender: FDA-Public Use
  Company Number: 163-21880-11031837

PATIENT
  Age: 64 Year
  Sex: Female
  Weight: 65.7716 kg

DRUGS (7)
  1. ZYRTEC [Concomitant]
  2. NEXIUM [Concomitant]
  3. SYNTHROID [Concomitant]
  4. REVLIMID [Suspect]
     Indication: MULTIPLE MYELOMA
     Dosage: 15 MG, 21/7, PO
     Route: 048
     Dates: start: 20100201
  5. CYMBALTA [Concomitant]
  6. ANTIBIOTICS (ANTIBIOTICS) [Concomitant]
  7. REVLIMID [Suspect]
     Dosage: 15 MG, 21/7, PO
     Route: 048
     Dates: start: 20110101

REACTIONS (5)
  - UPPER RESPIRATORY TRACT INFECTION [None]
  - EYE SWELLING [None]
  - DIARRHOEA [None]
  - EAR PAIN [None]
  - ABDOMINAL PAIN [None]
